FAERS Safety Report 5799385-3 (Version None)
Quarter: 2008Q3

REPORT INFORMATION
  Report Type: 
  Country: None (occurrence: None)
  Receive Date: 20080703
  Receipt Date: 20080625
  Transmission Date: 20090109
  Serious: Yes (Hospitalization, Other)
  Sender: FDA-Public Use
  Company Number: US-PFIZER INC-2008053581

PATIENT
  Age: 75 Year
  Sex: Female

DRUGS (2)
  1. AMLODIPINE [Suspect]
  2. VALSARTAN [Suspect]

REACTIONS (3)
  - HYPOTENSION [None]
  - INTENTIONAL OVERDOSE [None]
  - SUICIDE ATTEMPT [None]
